FAERS Safety Report 9020455 (Version 1)
Quarter: 2013Q1

REPORT INFORMATION
  Report Type: Spontaneous
  Country: US (occurrence: US)
  Receive Date: 20130119
  Receipt Date: 20130119
  Transmission Date: 20140127
  Serious: No
  Sender: FDA-Public Use
  Company Number: US-ALLERGAN-1208300US

PATIENT
  Sex: Female
  Weight: 65.76 kg

DRUGS (4)
  1. BOTOX COSMETIC [Suspect]
     Indication: SKIN WRINKLING
     Dosage: 1 UNITS, SINGLE
     Route: 030
     Dates: start: 20120605, end: 20120605
  2. FISH OIL [Concomitant]
     Indication: PRODUCT USED FOR UNKNOWN INDICATION
     Dosage: UNK
     Route: 048
  3. CALCIUM [Concomitant]
     Indication: PRODUCT USED FOR UNKNOWN INDICATION
     Dosage: UNK
     Route: 048
  4. LIPITOR [Concomitant]
     Indication: PRODUCT USED FOR UNKNOWN INDICATION
     Dosage: UNK
     Route: 048

REACTIONS (5)
  - Influenza like illness [Recovering/Resolving]
  - Wrong technique in drug usage process [Unknown]
  - Injection site bruising [Recovering/Resolving]
  - Headache [Recovering/Resolving]
  - Therapeutic response decreased [Unknown]
